FAERS Safety Report 7275983-5 (Version None)
Quarter: 2011Q1

REPORT INFORMATION
  Report Type: 
  Country: None (occurrence: None)
  Receive Date: 20110204
  Receipt Date: 20110125
  Transmission Date: 20110831
  Serious: Yes (Life-Threatening, Hospitalization, Other)
  Sender: FDA-Public Use
  Company Number: A0911713A

PATIENT
  Age: 29 Year
  Sex: Female

DRUGS (2)
  1. CLONAZEPAM [Suspect]
     Indication: PRODUCT USED FOR UNKNOWN INDICATION
     Dosage: 6MG PER DAY
     Route: 048
  2. WELLBUTRIN [Suspect]
     Indication: PRODUCT USED FOR UNKNOWN INDICATION
     Dosage: 4200MG PER DAY
     Route: 048

REACTIONS (8)
  - HYPERTHERMIA [None]
  - CONVULSION [None]
  - ACCIDENTAL EXPOSURE [None]
  - DELUSION [None]
  - OVERDOSE [None]
  - HALLUCINATION [None]
  - LOSS OF CONSCIOUSNESS [None]
  - TACHYCARDIA [None]
